FAERS Safety Report 15686711 (Version 1)
Quarter: 2018Q4

REPORT INFORMATION
  Report Type: Report from Study
  Country: US (occurrence: US)
  Receive Date: 20181204
  Receipt Date: 20181204
  Transmission Date: 20190205
  Serious: Yes (Other)
  Sender: FDA-Public Use
  Company Number: US-SHIRE-US201845275

PATIENT
  Age: 35 Year
  Sex: Female

DRUGS (1)
  1. HUMAN IMMUNOGLOBULIN; HYALURONIDASE [Suspect]
     Active Substance: HUMAN IMMUNOGLOBULIN G\HYALURONIDASE RECOMBINANT HUMAN
     Indication: PRIMARY IMMUNODEFICIENCY SYNDROME
     Dosage: UNK
     Route: 065
     Dates: start: 20181116

REACTIONS (5)
  - Abdominal pain [Unknown]
  - Weight increased [Unknown]
  - Loss of consciousness [Unknown]
  - Seizure [Unknown]
  - Fluid retention [Unknown]

NARRATIVE: CASE EVENT DATE: 20181116
